FAERS Safety Report 5697902-5 (Version None)
Quarter: 2008Q2

REPORT INFORMATION
  Report Type: 
  Country: None (occurrence: None)
  Receive Date: 20080404
  Receipt Date: 20080404
  Transmission Date: 20081010
  Serious: Yes (Hospitalization)
  Sender: FDA-Public Use
  Company Number: None

PATIENT
  Sex: Female
  Weight: 55.5 kg

DRUGS (12)
  1. DASATINIB (BRISTOL-MYERS SQUIBB) [Suspect]
     Indication: GLIOBLASTOMA MULTIFORME
     Dosage: 100MG PO DAILY
     Route: 048
     Dates: start: 20080304, end: 20080316
  2. ERLOTINIB (GENENTECH/OSIP) [Suspect]
     Indication: GLIOBLASTOMA MULTIFORME
     Dosage: 150MG PO DAILY
     Route: 048
     Dates: start: 20080304, end: 20080316
  3. ROZEREM [Concomitant]
  4. DECADRON [Concomitant]
  5. DEPAKOTE [Concomitant]
  6. DURATUSS [Concomitant]
  7. SYNTHROID [Concomitant]
  8. ZANTAC [Concomitant]
  9. ZYRTEC [Concomitant]
  10. MINOCYCLINE HCL [Concomitant]
  11. ZOFRAN [Concomitant]
  12. MULTI-VITAMIN [Concomitant]

REACTIONS (1)
  - PARTIAL SEIZURES [None]
